FAERS Safety Report 7958655-0 (Version None)
Quarter: 2011Q4

REPORT INFORMATION
  Report Type: 
  Country: None (occurrence: None)
  Receive Date: 20111206
  Receipt Date: 20111202
  Transmission Date: 20120403
  Serious: No
  Sender: FDA-Public Use
  Company Number: US-BIOGENIDEC-2011BI045833

PATIENT
  Age: 54 Year
  Sex: Female

DRUGS (1)
  1. TYSABRI [Suspect]
     Indication: MULTIPLE SCLEROSIS
     Route: 042
     Dates: start: 20111021, end: 20111202

REACTIONS (5)
  - URTICARIA [None]
  - DYSARTHRIA [None]
  - PRURITUS [None]
  - HYPERSENSITIVITY [None]
  - PARAESTHESIA ORAL [None]
